FAERS Safety Report 5707575-0 (Version None)
Quarter: 2008Q2

REPORT INFORMATION
  Report Type: 
  Country: None (occurrence: None)
  Receive Date: 20080416
  Receipt Date: 20080409
  Transmission Date: 20081010
  Serious: Yes (Hospitalization)
  Sender: FDA-Public Use
  Company Number: US-MERCK-0804USA00634

PATIENT
  Age: 15 Year
  Sex: Male

DRUGS (5)
  1. SINGULAIR [Suspect]
     Indication: ASTHMA
     Route: 048
     Dates: start: 19950101
  2. SINGULAIR [Suspect]
     Route: 048
  3. SINGULAIR [Suspect]
     Indication: NASAL CONGESTION
     Route: 048
     Dates: start: 19950101
  4. SINGULAIR [Suspect]
     Route: 048
  5. PAXIL [Concomitant]
     Route: 065
     Dates: start: 20070101

REACTIONS (2)
  - INSOMNIA [None]
  - SUICIDE ATTEMPT [None]
